FAERS Safety Report 23256134 (Version 1)
Quarter: 2023Q4

REPORT INFORMATION
  Report Type: Other
  Country: US (occurrence: None)
  Receive Date: 20231204
  Receipt Date: 20231204
  Transmission Date: 20240110
  Serious: Yes (Death)
  Sender: FDA-Public Use
  Company Number: US-ROCHE-3467151

PATIENT
  Age: 79 Year
  Sex: Male

DRUGS (17)
  1. RITUXAN [Suspect]
     Active Substance: RITUXIMAB
     Indication: B-cell lymphoma
     Dosage: DATE OF SERVICE: 24/OCT/2023
     Route: 065
  2. RITUXAN [Suspect]
     Active Substance: RITUXIMAB
     Indication: Metastases to liver
  3. RITUXAN [Suspect]
     Active Substance: RITUXIMAB
     Indication: Cholangiocarcinoma
  4. RITUXAN [Suspect]
     Active Substance: RITUXIMAB
     Indication: Pancreatic disorder
  5. POLIVY [Suspect]
     Active Substance: POLATUZUMAB VEDOTIN-PIIQ
     Indication: Product used for unknown indication
     Dosage: DATE OF SERVICE 24OCT2023
     Route: 065
  6. ELITEK [Concomitant]
     Active Substance: RASBURICASE
  7. PREDNISONE [Concomitant]
     Active Substance: PREDNISONE
  8. TYLENOL [Concomitant]
     Active Substance: ACETAMINOPHEN
  9. ALOXI [Concomitant]
     Active Substance: PALONOSETRON HYDROCHLORIDE
  10. BENADRYL [Concomitant]
     Active Substance: DIPHENHYDRAMINE HYDROCHLORIDE
  11. DECADRON [Concomitant]
     Active Substance: DEXAMETHASONE
  12. POLIVY [Concomitant]
     Active Substance: POLATUZUMAB VEDOTIN-PIIQ
  13. ADRIAMYCIN [Concomitant]
     Active Substance: DOXORUBICIN HYDROCHLORIDE
  14. CINVANTI [Concomitant]
     Active Substance: APREPITANT
  15. ELITEK [Concomitant]
     Active Substance: RASBURICASE
  16. SODIUM BICARBONATE [Concomitant]
     Active Substance: SODIUM BICARBONATE
  17. DEMEROL [Concomitant]
     Active Substance: MEPERIDINE HYDROCHLORIDE

REACTIONS (1)
  - Death [Fatal]
